FAERS Safety Report 7819606-2 (Version None)
Quarter: 2011Q4

REPORT INFORMATION
  Report Type: 
  Country: None (occurrence: None)
  Receive Date: 20111018
  Receipt Date: 20111018
  Transmission Date: 20120403
  Serious: No
  Sender: FDA-Public Use
  Company Number: None

PATIENT
  Age: 53 Year
  Sex: Female
  Weight: 83.914 kg

DRUGS (1)
  1. METRO MENTHOL ELECTRONIC CIGARET [Suspect]
     Indication: SMOKING CESSATION THERAPY
     Dates: start: 20111013, end: 20111014

REACTIONS (4)
  - DYSPNOEA [None]
  - THERMAL BURN [None]
  - OROPHARYNGEAL PAIN [None]
  - CHEST PAIN [None]
